FAERS Safety Report 4613006-4 (Version None)
Quarter: 2005Q1

REPORT INFORMATION
  Report Type: 
  Country: None (occurrence: None)
  Receive Date: 20050318
  Receipt Date: 20050228
  Transmission Date: 20050727
  Serious: Yes (Hospitalization)
  Sender: FDA-Public Use
  Company Number: JP-MERCK-0503USA00205

PATIENT
  Age: 64 Year
  Sex: Female
  Weight: 60 kg

DRUGS (15)
  1. DASEN [Concomitant]
     Indication: BRONCHITIS
     Route: 048
     Dates: start: 20050212, end: 20050216
  2. MUCOSOLVAN [Concomitant]
     Indication: BRONCHITIS
     Route: 048
     Dates: start: 20050212, end: 20050216
  3. HOKUNALIN [Concomitant]
     Indication: BRONCHITIS
     Route: 048
     Dates: start: 20050212, end: 20050216
  4. PANSPORIN [Concomitant]
     Indication: BRONCHITIS
     Route: 042
     Dates: start: 20050209, end: 20050209
  5. PANSPORIN [Concomitant]
     Route: 042
     Dates: start: 20050212, end: 20050212
  6. AMINOPHYLLINE [Concomitant]
     Indication: ASTHMA
     Route: 042
     Dates: start: 20050212, end: 20050212
  7. AMINOPHYLLINE [Concomitant]
     Route: 042
     Dates: start: 20050215, end: 20050215
  8. SAXIZON [Concomitant]
     Indication: ASTHMA
     Route: 042
     Dates: start: 20050215, end: 20050215
  9. SAXIZON [Concomitant]
     Route: 042
     Dates: start: 20050212, end: 20050212
  10. MEIACT [Concomitant]
     Indication: BRONCHITIS
     Route: 048
     Dates: start: 20050209, end: 20050212
  11. OLMESARTAN MEDOXOMIL [Concomitant]
     Indication: HYPERTENSION
     Route: 048
     Dates: start: 20041101, end: 20050216
  12. DIHYDROCODEINE PHOSPHATE [Concomitant]
     Indication: COUGH
     Route: 048
     Dates: start: 20050212, end: 20050216
  13. ROCEPHIN [Concomitant]
     Indication: PHARYNGITIS
     Route: 042
     Dates: start: 20050215, end: 20050215
  14. SINGULAIR [Suspect]
     Indication: ASTHMA
     Route: 048
     Dates: start: 20050212, end: 20050216
  15. EPHEDRINE HYDROCHLORIDE [Concomitant]
     Route: 065

REACTIONS (14)
  - ANOREXIA [None]
  - COUGH [None]
  - DYSGEUSIA [None]
  - FEELING ABNORMAL [None]
  - FREQUENT BOWEL MOVEMENTS [None]
  - INSOMNIA [None]
  - MALAISE [None]
  - NAUSEA [None]
  - PALPITATIONS [None]
  - PAROSMIA [None]
  - POLLAKIURIA [None]
  - THIRST [None]
  - VOMITING [None]
  - WHEEZING [None]
